FAERS Safety Report 14901118 (Version 1)
Quarter: 2018Q2

REPORT INFORMATION
  Report Type: Spontaneous
  Country: US (occurrence: US)
  Receive Date: 20180429
  Receipt Date: 20180429
  Transmission Date: 20180711
  Serious: Yes (Disabling)
  Sender: FDA-Public Use
  Company Number: None

PATIENT
  Age: 35 Year
  Sex: Male
  Weight: 65.25 kg

DRUGS (1)
  1. CIPROFLOXACIN 750MG [Suspect]
     Active Substance: CIPROFLOXACIN
     Indication: PROSTATITIS
     Dosage: ?          QUANTITY:1 TABLET(S);?
     Route: 048
     Dates: start: 20160104, end: 20160105

REACTIONS (6)
  - Agitation [None]
  - Tremor [None]
  - Hypoaesthesia [None]
  - Insomnia [None]
  - Muscle spasms [None]
  - Back pain [None]

NARRATIVE: CASE EVENT DATE: 20160106
